FAERS Safety Report 15899881 (Version 1)
Quarter: 2019Q1

REPORT INFORMATION
  Report Type: Other
  Country: AU (occurrence: AU)
  Receive Date: 20190201
  Receipt Date: 20190201
  Transmission Date: 20190417
  Serious: Yes (Other)
  Sender: FDA-Public Use
  Company Number: AU-MSN LABORATORIES PRIVATE LIMITED-2062033

PATIENT
  Age: 84 Year
  Sex: Female

DRUGS (2)
  1. MOXIFLOXACIN HYDROCHLORIDE. [Suspect]
     Active Substance: MOXIFLOXACIN HYDROCHLORIDE
     Indication: PRODUCT USED FOR UNKNOWN INDICATION
     Route: 065
  2. CEFTRIAXONE. [Suspect]
     Active Substance: CEFTRIAXONE
     Route: 065

REACTIONS (3)
  - Rash [Recovering/Resolving]
  - Hepatitis [Recovering/Resolving]
  - Agranulocytosis [Recovering/Resolving]
